FAERS Safety Report 21437076 (Version 2)
Quarter: 2022Q4

REPORT INFORMATION
  Report Type: Report from Study
  Country: DE (occurrence: None)
  Receive Date: 20221010
  Receipt Date: 20221013
  Transmission Date: 20230113
  Serious: Yes (Hospitalization)
  Sender: FDA-Public Use
  Company Number: DE-ROCHE-3192741

PATIENT
  Age: 65 Year
  Sex: Male
  Weight: 70.9 kg

DRUGS (3)
  1. ATEZOLIZUMAB [Suspect]
     Active Substance: ATEZOLIZUMAB
     Indication: Colorectal cancer metastatic
     Dosage: LAST DOSE OF ATEZOLIZUMAB PRIOR TO THE SAE ONSET WAS ADMINISTERED ON 15-SEP-2022
     Route: 041
     Dates: start: 20220513, end: 20220915
  2. PELAREOREP [Suspect]
     Active Substance: PELAREOREP
     Indication: Colorectal cancer metastatic
     Dosage: DOSE: 4.5 X10E10 TCID50?LAST DOSE OF PELAREOREP PRIOR TO THE SAE ONSET WAS ADMINISTERED ON 15-SEP-20
     Route: 042
     Dates: start: 20220512, end: 20220915
  3. TIPIRACIL HYDROCHLORIDE\TRIFLURIDINE [Suspect]
     Active Substance: TIPIRACIL HYDROCHLORIDE\TRIFLURIDINE
     Indication: Colorectal cancer metastatic
     Dosage: LAST DOSE OF TRIFLURIDINE/TIPIRACIL ON 13-SEP-2022
     Route: 048
     Dates: start: 20220512, end: 20220913

REACTIONS (1)
  - Autoimmune colitis [Not Recovered/Not Resolved]

NARRATIVE: CASE EVENT DATE: 20220919
